FAERS Safety Report 25177440 (Version 5)
Quarter: 2025Q4

REPORT INFORMATION
  Report Type: Spontaneous
  Country: US (occurrence: US)
  Receive Date: 20250409
  Receipt Date: 20251008
  Transmission Date: 20260118
  Serious: No
  Sender: BRISTOL-MYERS SQUIBB COMPANY
  Company Number: US-BRISTOL-MYERS SQUIBB COMPANY-2025-052540

PATIENT
  Age: 56 Year
  Sex: Male

DRUGS (3)
  1. REVLIMID [Suspect]
     Active Substance: LENALIDOMIDE
     Indication: Plasma cell myeloma
     Dosage: QD FOR 21 DAYS ON, 7 OFF
     Dates: end: 202412
  2. REVLIMID [Suspect]
     Active Substance: LENALIDOMIDE
     Dosage: QD FOR 21 DAYS ON, 7 OFF
     Dates: end: 202412
  3. REVLIMID [Suspect]
     Active Substance: LENALIDOMIDE
     Dosage: QD FOR 21 DAYS ON, 7 OFF

REACTIONS (8)
  - Insurance issue [Unknown]
  - Pain in extremity [Recovered/Resolved]
  - Therapy interrupted [Unknown]
  - Tremor [Unknown]
  - Constipation [Unknown]
  - Dyspnoea [Unknown]
  - Infection [Unknown]
  - Contusion [Unknown]

NARRATIVE: CASE EVENT DATE: 20241201
